FAERS Safety Report 6729835-7 (Version None)
Quarter: 2010Q2

REPORT INFORMATION
  Report Type: 
  Country: None (occurrence: None)
  Receive Date: 20100513
  Receipt Date: 20100505
  Transmission Date: 20101027
  Serious: Yes (Hospitalization, Other)
  Sender: FDA-Public Use
  Company Number: VISP-UK-1001S-0028

PATIENT
  Age: 88 Year
  Sex: Female

DRUGS (9)
  1. VISIPAQUE [Suspect]
     Indication: DRUG USE FOR UNKNOWN INDICATION
     Dosage: SINGLE DOSE, I.A.
     Route: 013
     Dates: start: 20091218, end: 20091218
  2. HEPARIN SODIUM [Suspect]
     Dosage: I.A.
     Route: 013
     Dates: start: 20091218, end: 20091218
  3. ASPIRIN [Concomitant]
  4. CLOPIDOGREL [Concomitant]
  5. DIDOCAINE 2% [Concomitant]
  6. BIVALIRUDIN [Concomitant]
  7. GLYCERYL TRINITRATE [Concomitant]
  8. ISOSORBIDE DINITRATE [Concomitant]
  9. SIMVASTATIN [Concomitant]

REACTIONS (2)
  - CEREBROVASCULAR ACCIDENT [None]
  - CRANIAL NERVE PARALYSIS [None]
